FAERS Safety Report 7125097-X (Version None)
Quarter: 2010Q4

REPORT INFORMATION
  Report Type: 
  Country: None (occurrence: None)
  Receive Date: 20101129
  Receipt Date: 20101101
  Transmission Date: 20110411
  Serious: Yes (Other)
  Sender: FDA-Public Use
  Company Number: HU-AMGEN-KDL431368

PATIENT

DRUGS (2)
  1. NPLATE [Suspect]
     Indication: IDIOPATHIC THROMBOCYTOPENIC PURPURA
     Dosage: 6 MG/KG, QWK
     Route: 058
     Dates: start: 20100610
  2. PANTOPRAZOLE [Concomitant]
     Dosage: 40 MG, QD
     Dates: start: 20100225

REACTIONS (8)
  - BONE PAIN [None]
  - HEADACHE [None]
  - HYPOAESTHESIA [None]
  - MUSCULAR WEAKNESS [None]
  - PAIN IN EXTREMITY [None]
  - PARAESTHESIA [None]
  - SPINAL COLUMN INJURY [None]
  - THERAPEUTIC RESPONSE DECREASED [None]
